FAERS Safety Report 23181252 (Version 1)
Quarter: 2023Q4

REPORT INFORMATION
  Report Type: Report from Study
  Country: US (occurrence: None)
  Receive Date: 20231114
  Receipt Date: 20231114
  Transmission Date: 20240110
  Serious: Yes (Hospitalization, Other)
  Sender: FDA-Public Use
  Company Number: 2023A255099

PATIENT
  Sex: Female

DRUGS (1)
  1. FASENRA [Suspect]
     Active Substance: BENRALIZUMAB
     Indication: Asthma
     Route: 058
     Dates: start: 202307

REACTIONS (5)
  - Myocardial infarction [Unknown]
  - Fall [Unknown]
  - Chest injury [Unknown]
  - Intervertebral disc protrusion [Unknown]
  - Gait disturbance [Unknown]
